APPROVED DRUG PRODUCT: SILDENAFIL CITRATE
Active Ingredient: SILDENAFIL CITRATE
Strength: EQ 25MG BASE
Dosage Form/Route: TABLET;ORAL
Application: A205791 | Product #001
Applicant: PERRIGO R AND D CO
Approved: Apr 23, 2020 | RLD: No | RS: No | Type: DISCN